FAERS Safety Report 7083952-3 (Version None)
Quarter: 2010Q4

REPORT INFORMATION
  Report Type: 
  Country: None (occurrence: None)
  Receive Date: 20101104
  Receipt Date: 20100415
  Transmission Date: 20110411
  Serious: No
  Sender: FDA-Public Use
  Company Number: US-ABBOTT-10P-163-0639488-00

PATIENT
  Sex: Male
  Weight: 95.794 kg

DRUGS (2)
  1. KALETRA [Suspect]
     Indication: HIV INFECTION
  2. CRESTOR [Concomitant]
     Indication: BLOOD CHOLESTEROL
     Dates: start: 20080101, end: 20090101

REACTIONS (2)
  - BLOOD TRIGLYCERIDES INCREASED [None]
  - FIBROMYALGIA [None]
